FAERS Safety Report 5498069-9 (Version None)
Quarter: 2007Q4

REPORT INFORMATION
  Report Type: 
  Country: None (occurrence: None)
  Receive Date: 20071025
  Receipt Date: 20071015
  Transmission Date: 20080405
  Serious: Yes (Other)
  Sender: FDA-Public Use
  Company Number: CA-PFIZER INC-2007087211

PATIENT
  Age: 81 Year
  Sex: Female

DRUGS (8)
  1. CARDURA [Suspect]
     Route: 048
  2. ATACAND HCT [Suspect]
  3. EXELON [Suspect]
     Route: 048
  4. LOPRESSOR [Suspect]
  5. ALTACE [Concomitant]
  6. LIPITOR [Concomitant]
     Route: 048
  7. NORVASC [Concomitant]
     Route: 048
  8. RIVASA [Concomitant]

REACTIONS (5)
  - ANOREXIA [None]
  - BRADYCARDIA [None]
  - CARDIOMEGALY [None]
  - SYNCOPE [None]
  - WEIGHT DECREASED [None]
